FAERS Safety Report 8007992-2 (Version None)
Quarter: 2011Q4

REPORT INFORMATION
  Report Type: 
  Country: None (occurrence: None)
  Receive Date: 20111227
  Receipt Date: 20111213
  Transmission Date: 20120403
  Serious: Yes (Other)
  Sender: FDA-Public Use
  Company Number: PHEH2011US06575

PATIENT
  Sex: Male
  Weight: 200 kg

DRUGS (4)
  1. ZYPREXA [Concomitant]
     Dosage: 30 MG, DAILY
  2. LITHIUM CARBONATE [Concomitant]
     Dosage: 600 MG, QAM+QHS
     Dates: start: 20090101
  3. CLOZARIL [Suspect]
     Indication: SCHIZOAFFECTIVE DISORDER BIPOLAR TYPE
     Dosage: 150 MG, UNK
     Route: 048
     Dates: end: 20111001
  4. ZYPREXA [Concomitant]
     Dosage: 25 MG, QHS

REACTIONS (2)
  - CHEST DISCOMFORT [None]
  - PALPITATIONS [None]
